FAERS Safety Report 18273168 (Version 1)
Quarter: 2020Q3

REPORT INFORMATION
  Report Type: Spontaneous
  Country: GB (occurrence: GB)
  Receive Date: 20200916
  Receipt Date: 20200916
  Transmission Date: 20201103
  Serious: Yes (Other)
  Sender: FDA-Public Use
  Company Number: GB-PFIZER INC-2020355183

PATIENT
  Sex: Female

DRUGS (1)
  1. LYRICA [Suspect]
     Active Substance: PREGABALIN
     Dosage: 300 MG, DAILY

REACTIONS (5)
  - Withdrawal syndrome [Unknown]
  - Prescription drug used without a prescription [Unknown]
  - Thrombosis [Unknown]
  - Ulcer [Unknown]
  - Drug dependence [Unknown]
